FAERS Safety Report 18436137 (Version 8)
Quarter: 2021Q2

REPORT INFORMATION
  Report Type: Report from Study
  Country: US (occurrence: US)
  Receive Date: 20201028
  Receipt Date: 20210603
  Transmission Date: 20210717
  Serious: Yes (Life-Threatening, Hospitalization)
  Sender: FDA-Public Use
  Company Number: US-GLAXOSMITHKLINE-US2020GSK208670

PATIENT
  Age: 52 Year
  Sex: Female
  Weight: 80.5 kg

DRUGS (20)
  1. XANAX [Concomitant]
     Active Substance: ALPRAZOLAM
     Indication: ANXIETY
     Dosage: 0.25 MG, Z?PRN
     Route: 048
     Dates: start: 20201012
  2. NIRAPARIB [Suspect]
     Active Substance: NIRAPARIB
     Indication: OVARIAN CANCER
     Dosage: 300 MG
     Dates: start: 20201002, end: 20201015
  3. VANCOMYCIN [Concomitant]
     Active Substance: VANCOMYCIN
     Indication: PROPHYLAXIS
     Dosage: 1250 MG, SINGLE
     Route: 042
     Dates: start: 20201022, end: 20201022
  4. PACLITAXEL. [Suspect]
     Active Substance: PACLITAXEL
     Dosage: 343 MG
     Route: 042
     Dates: start: 20200703, end: 20200703
  5. ACETAMINOPHEN. [Concomitant]
     Active Substance: ACETAMINOPHEN
     Indication: HEADACHE
     Dosage: 1000 MG
     Route: 058
     Dates: start: 20201022, end: 20201022
  6. ACETAMINOPHEN. [Concomitant]
     Active Substance: ACETAMINOPHEN
     Dosage: 650 MG, PRN
     Route: 048
     Dates: start: 20201020, end: 20201116
  7. BEVACIZUMAB. [Suspect]
     Active Substance: BEVACIZUMAB
     Dosage: 1260 MG/KG
     Route: 042
     Dates: start: 20200612, end: 20200612
  8. BIOTENE MOUTH WASH [Concomitant]
     Active Substance: CETYLPYRIDINIUM CHLORIDE
     Indication: STOMATITIS
     Dosage: 10 ML, TID
     Route: 048
     Dates: start: 20201013, end: 20201016
  9. PACLITAXEL. [Suspect]
     Active Substance: PACLITAXEL
     Indication: OVARIAN CANCER
     Dosage: 330 MG
     Route: 042
     Dates: start: 20200320, end: 20200320
  10. BEVACIZUMAB. [Suspect]
     Active Substance: BEVACIZUMAB
     Indication: OVARIAN CANCER
     Dosage: 15 MG/KG
     Route: 042
     Dates: start: 20200320, end: 20200320
  11. CISPLATIN. [Concomitant]
     Active Substance: CISPLATIN
     Dosage: UNK
  12. DOCETAXEL. [Concomitant]
     Active Substance: DOCETAXEL
     Dosage: UNK
  13. VANCOMYCIN [Concomitant]
     Active Substance: VANCOMYCIN
     Dosage: 1 MG, TID
     Route: 042
     Dates: start: 20201022
  14. NYSTATIN ORAL [Concomitant]
     Indication: STOMATITIS
     Dosage: 5 ML, QID
     Route: 048
     Dates: start: 20201016, end: 20201019
  15. DOSTARLIMAB [Suspect]
     Active Substance: DOSTARLIMAB
     Dosage: 1000 MG
     Dates: start: 20201002, end: 20201002
  16. CARBOPLATIN. [Suspect]
     Active Substance: CARBOPLATIN
     Dosage: 5 AUC
     Route: 042
     Dates: start: 20200703, end: 20200703
  17. KEFLEX [Concomitant]
     Active Substance: CEPHALEXIN
     Indication: RASH
     Dosage: 500 MG, QID
     Route: 048
     Dates: start: 20201019, end: 20201021
  18. DIFLUCAN [Concomitant]
     Active Substance: FLUCONAZOLE
     Indication: STOMATITIS
     Dosage: 150 MG, QD
     Route: 048
     Dates: start: 20201016, end: 20201019
  19. DOSTARLIMAB [Suspect]
     Active Substance: DOSTARLIMAB
     Indication: OVARIAN CANCER
     Dosage: 500 MG
     Dates: start: 20200410, end: 20200410
  20. CARBOPLATIN. [Suspect]
     Active Substance: CARBOPLATIN
     Indication: OVARIAN CANCER
     Dosage: 5 AUC
     Route: 042
     Dates: start: 20200320, end: 20200320

REACTIONS (3)
  - Neutrophil count decreased [Recovered/Resolved]
  - Stomatitis [Recovered/Resolved with Sequelae]
  - Platelet count decreased [Recovered/Resolved with Sequelae]

NARRATIVE: CASE EVENT DATE: 20201019
